FAERS Safety Report 5720306-3 (Version None)
Quarter: 2008Q2

REPORT INFORMATION
  Report Type: 
  Country: None (occurrence: None)
  Receive Date: 20080423
  Receipt Date: 20070613
  Transmission Date: 20081010
  Serious: Yes (Other)
  Sender: FDA-Public Use
  Company Number: 242836

PATIENT
  Age: 67 Year
  Sex: Female
  Weight: 42.4 kg

DRUGS (3)
  1. AVASTIN [Suspect]
     Indication: COLON CANCER
     Dosage: 230 MG, Q3W, INTRAVENOUS
     Route: 042
     Dates: start: 20070322
  2. AVASTIN [Suspect]
     Indication: METASTASES TO LIVER
     Dosage: 230 MG, Q3W, INTRAVENOUS
     Route: 042
     Dates: start: 20070322
  3. XELODA [Concomitant]

REACTIONS (1)
  - LACUNAR INFARCTION [None]
